FAERS Safety Report 19872051 (Version 3)
Quarter: 2021Q4

REPORT INFORMATION
  Report Type: Spontaneous
  Country: US (occurrence: US)
  Receive Date: 20210923
  Receipt Date: 20211220
  Transmission Date: 20220303
  Serious: Yes (Other)
  Sender: FDA-Public Use
  Company Number: US-SA-SAC20210921000903

PATIENT
  Age: 56 Year
  Sex: Female

DRUGS (5)
  1. DUPIXENT [Suspect]
     Active Substance: DUPILUMAB
     Indication: Asthma
     Dosage: 300 MG, QOW
     Route: 058
     Dates: start: 202108
  2. ANASTROZOLE [Concomitant]
     Active Substance: ANASTROZOLE
  3. LETROZOLE [Concomitant]
     Active Substance: LETROZOLE
  4. XGEVA [Concomitant]
     Active Substance: DENOSUMAB
  5. ZOFRAN [Concomitant]
     Active Substance: ONDANSETRON HYDROCHLORIDE

REACTIONS (5)
  - Breast cancer metastatic [Unknown]
  - Metastases to bone [Unknown]
  - Alopecia [Recovering/Resolving]
  - Paraesthesia oral [Unknown]
  - Product use issue [Unknown]

NARRATIVE: CASE EVENT DATE: 20210801
